FAERS Safety Report 8129569-0 (Version None)
Quarter: 2012Q1

REPORT INFORMATION
  Report Type: 
  Country: None (occurrence: None)
  Receive Date: 20120210
  Receipt Date: 20120201
  Transmission Date: 20120608
  Serious: Yes (Death, Life-Threatening)
  Sender: FDA-Public Use
  Company Number: US-GLAXOSMITHKLINE-A0894732A

PATIENT
  Age: 65 Year
  Sex: Female

DRUGS (1)
  1. PROMACTA [Suspect]
     Indication: AUTOIMMUNE THROMBOCYTOPENIA
     Dosage: 50MG PER DAY
     Route: 048
     Dates: start: 20100630, end: 20100714

REACTIONS (7)
  - ACUTE MYELOID LEUKAEMIA [None]
  - GRANULOCYTOPENIA [None]
  - DRUG INEFFECTIVE [None]
  - MYELODYSPLASTIC SYNDROME [None]
  - MANTLE CELL LYMPHOMA [None]
  - GRAFT VERSUS HOST DISEASE [None]
  - DISEASE PROGRESSION [None]
